FAERS Safety Report 7037677-0 (Version None)
Quarter: 2010Q4

REPORT INFORMATION
  Report Type: 
  Country: None (occurrence: None)
  Receive Date: 20101011
  Receipt Date: 20100929
  Transmission Date: 20110411
  Serious: Yes (Life-Threatening, Hospitalization, Other)
  Sender: FDA-Public Use
  Company Number: US-BAYER-201032218NA

PATIENT
  Age: 65 Year
  Sex: Female
  Weight: 61 kg

DRUGS (21)
  1. SORAFENIB [Suspect]
     Indication: COLORECTAL CANCER METASTATIC
     Dosage: TOTAL DAILY DOSE: 800 MG  UNIT DOSE: 200 MG
     Route: 048
     Dates: start: 20100722, end: 20100813
  2. SORAFENIB [Suspect]
     Dosage: TOTAL DAILY DOSE: 800 MG  UNIT DOSE: 200 MG
     Route: 048
     Dates: start: 20100530
  3. RDEA119 [Suspect]
     Indication: COLORECTAL CANCER METASTATIC
     Dosage: TOTAL DAILY DOSE: 100 MG
     Dates: start: 20100722, end: 20100813
  4. RDEA119 [Suspect]
     Dosage: TOTAL DAILY DOSE: 100 MG
     Dates: start: 20100527
  5. ALBUTEROL [Concomitant]
     Indication: PULMONARY CONGESTION
     Dosage: 2 PUFFS/INHALER
     Route: 055
     Dates: start: 20090501
  6. MUCINEX [Concomitant]
     Indication: PULMONARY CONGESTION
     Dosage: 200 MG
     Dates: start: 20090501
  7. PROTONIX [Concomitant]
     Indication: ANTACID THERAPY
     Dosage: TOTAL DAILY DOSE: 80 MG
     Route: 048
     Dates: start: 20020101
  8. LOMOTIL [Concomitant]
     Indication: DIARRHOEA
     Dosage: 2.5 MG
     Route: 048
     Dates: start: 20100529
  9. FERROUS SULFATE [Concomitant]
     Indication: MINERAL SUPPLEMENTATION
     Dosage: TOTAL DAILY DOSE: 325 MG
     Route: 048
     Dates: start: 20100527
  10. IMODIUM [Concomitant]
     Indication: DIARRHOEA
     Dosage: TOTAL DAILY DOSE: 2 MG
     Route: 048
     Dates: start: 20100529
  11. MARINOL [Concomitant]
     Indication: PAIN
     Dosage: TOTAL DAILY DOSE: 5 MG
     Route: 048
     Dates: start: 20100819
  12. DILTIAZEM [Concomitant]
     Indication: TACHYCARDIA
     Route: 048
     Dates: start: 20100822
  13. MUCINEX [Concomitant]
     Route: 048
  14. LIDOCAINE [Concomitant]
     Indication: STOMATITIS
     Dosage: 15 ML/300 MG; SWISH/SWALLOW WITH MEALS
     Route: 048
     Dates: start: 20100820
  15. PREDNISONE [Concomitant]
     Indication: CHRONIC OBSTRUCTIVE PULMONARY DISEASE
     Route: 048
     Dates: start: 20100906, end: 20100907
  16. PREDNISONE [Concomitant]
     Route: 048
     Dates: start: 20100904, end: 20100906
  17. PREDNISONE [Concomitant]
     Route: 048
     Dates: start: 20100903, end: 20100904
  18. FLUCONAZOLE [Concomitant]
     Indication: FUNGAL INFECTION
     Route: 048
     Dates: start: 20100903, end: 20100907
  19. LEVAQUIN [Concomitant]
     Indication: BRONCHITIS
     Route: 048
     Dates: start: 20100903, end: 20100907
  20. KEPPRA [Concomitant]
     Indication: CONVULSION PROPHYLAXIS
     Dosage: TOTAL DAILY DOSE: 1000 MG
     Route: 048
     Dates: start: 20100902
  21. XOPENEX [Concomitant]
     Indication: DYSPNOEA
     Dosage: 2 PUFFS Q 4 HOURS PRN
     Route: 055
     Dates: start: 20100903

REACTIONS (7)
  - ANAEMIA [None]
  - APHASIA [None]
  - DIARRHOEA [None]
  - DYSPNOEA [None]
  - FATIGUE [None]
  - HYPOKALAEMIA [None]
  - TACHYCARDIA [None]
